FAERS Safety Report 6742716-8 (Version None)
Quarter: 2010Q2

REPORT INFORMATION
  Report Type: 
  Country: None (occurrence: None)
  Receive Date: 20100526
  Receipt Date: 20091208
  Transmission Date: 20101027
  Serious: No
  Sender: FDA-Public Use
  Company Number: US-ABBOTT-09P-163-0613846-00

PATIENT
  Sex: Female

DRUGS (5)
  1. ZEMPLAR [Suspect]
     Indication: RENAL FAILURE CHRONIC
     Route: 048
     Dates: start: 20091124
  2. TYLENOL (CAPLET) [Concomitant]
     Indication: ARTHRALGIA
  3. LABETALOL HCL [Concomitant]
     Indication: HYPERTENSION
  4. CLONIDINE [Concomitant]
     Indication: HYPERTENSION
  5. FUROSEMIDE [Concomitant]
     Indication: RENAL FAILURE CHRONIC
     Dates: start: 20091124

REACTIONS (3)
  - ARTHRALGIA [None]
  - JOINT SWELLING [None]
  - VEIN DISORDER [None]
